FAERS Safety Report 8968930 (Version 1)
Quarter: 2012Q4

REPORT INFORMATION
  Report Type: 
  Country: US (occurrence: US)
  Receive Date: 20121218
  Receipt Date: 20121218
  Transmission Date: 20130627
  Serious: No
  Sender: FDA-Public Use
  Company Number: US-BRISTOL-MYERS SQUIBB COMPANY-16684607

PATIENT
  Age: 6 None
  Sex: Male

DRUGS (2)
  1. ABILIFY TABS 10 MG [Suspect]
     Indication: DEPRESSION
  2. LEXAPRO [Concomitant]

REACTIONS (2)
  - Feeling abnormal [Unknown]
  - Drug ineffective [Unknown]
